FAERS Safety Report 14132150 (Version 1)
Quarter: 2017Q4

REPORT INFORMATION
  Report Type: Spontaneous
  Country: US (occurrence: US)
  Receive Date: 20171027
  Receipt Date: 20171027
  Transmission Date: 20180321
  Serious: Yes (Hospitalization)
  Sender: FDA-Public Use
  Company Number: US-ENDO PHARMACEUTICALS INC-2017-005584

PATIENT
  Age: 36 Year
  Sex: Male
  Weight: 115 kg

DRUGS (2)
  1. DANTROLENE. [Concomitant]
     Active Substance: DANTROLENE SODIUM
     Indication: HYPERTHERMIA MALIGNANT
     Dosage: 160 MG, THROUGH THE CENTRAL CATHETER
     Route: 042
  2. DANTRIUM [Suspect]
     Active Substance: DANTROLENE SODIUM
     Indication: HYPERTHERMIA MALIGNANT
     Dosage: 60 ML (20 MG), TIMES 12 BOLUSES (720 ML)
     Route: 040

REACTIONS (1)
  - Deep vein thrombosis [Recovered/Resolved]
